FAERS Safety Report 12625623 (Version 3)
Quarter: 2020Q2

REPORT INFORMATION
  Report Type: Spontaneous
  Country: US (occurrence: US)
  Receive Date: 20160805
  Receipt Date: 20200626
  Transmission Date: 20200713
  Serious: Yes (Death, Hospitalization)
  Sender: FDA-Public Use
  Company Number: US-JNJFOC-20160727598

PATIENT
  Age: 65 Year
  Sex: Male

DRUGS (1)
  1. XARELTO [Suspect]
     Active Substance: RIVAROXABAN
     Indication: DEEP VEIN THROMBOSIS
     Route: 048
     Dates: start: 20131224, end: 20140324

REACTIONS (2)
  - Haemorrhage intracranial [Fatal]
  - Respiratory failure [Fatal]

NARRATIVE: CASE EVENT DATE: 20140324
